FAERS Safety Report 5821051-6 (Version None)
Quarter: 2008Q3

REPORT INFORMATION
  Report Type: 
  Country: None (occurrence: None)
  Receive Date: 20080721
  Receipt Date: 20080707
  Transmission Date: 20090109
  Serious: Yes (Other)
  Sender: FDA-Public Use
  Company Number: DSU-2008-01015

PATIENT
  Age: 72 Year
  Sex: Male
  Weight: 78.4723 kg

DRUGS (1)
  1. BENICAR [Suspect]
     Indication: HYPERTENSION
     Dosage: 40 MG (20 MG, BID), PER ORAL
     Route: 048
     Dates: start: 20080630

REACTIONS (1)
  - BLOOD PRESSURE INCREASED [None]
